FAERS Safety Report 6655440-7 (Version None)
Quarter: 2010Q1

REPORT INFORMATION
  Report Type: 
  Country: None (occurrence: None)
  Receive Date: 20100329
  Receipt Date: 20100322
  Transmission Date: 20100710
  Serious: Yes (Hospitalization, Other)
  Sender: FDA-Public Use
  Company Number: DK-SANOFI-AVENTIS-2010SA009552

PATIENT
  Age: 89 Year
  Sex: Female

DRUGS (12)
  1. AMARYL [Suspect]
     Dosage: 1 MILLIGRAM(S)
     Route: 048
     Dates: end: 20100127
  2. CITALOPRAM [Concomitant]
     Indication: DEPRESSION
     Dosage: IN THE MORNING
     Route: 065
  3. PARACETAMOL [Concomitant]
     Indication: PAIN
     Route: 048
  4. LACTULOSE [Concomitant]
     Indication: DRUG USE FOR UNKNOWN INDICATION
     Route: 048
  5. TOILAX [Concomitant]
     Indication: DRUG USE FOR UNKNOWN INDICATION
     Dosage: IN THE EVENING
     Route: 048
  6. SIMVASTATIN [Concomitant]
     Indication: DRUG USE FOR UNKNOWN INDICATION
     Dosage: 1 TABLET AT NIGHT
     Route: 048
  7. BUDESONIDE/FORMOTEROL [Concomitant]
     Dosage: 2 PUFFS IN THE MORNING AND EVENING DOSE:2 PUFF(S)
     Route: 065
  8. ACETYLSALICYLIC ACID [Concomitant]
     Indication: DRUG USE FOR UNKNOWN INDICATION
     Route: 048
  9. MEMANTINE HCL [Concomitant]
     Indication: DRUG USE FOR UNKNOWN INDICATION
     Dosage: 1 TABLET IN THE MORNING
     Route: 048
  10. PANTOPRAZOLE [Concomitant]
     Indication: DRUG USE FOR UNKNOWN INDICATION
     Route: 048
  11. MIRTAZAPINE [Concomitant]
     Indication: DEPRESSION
     Dosage: AT NIGHT
     Route: 048
  12. ALL OTHER THERAPEUTIC PRODUCTS [Concomitant]
     Route: 048

REACTIONS (2)
  - ALTERED STATE OF CONSCIOUSNESS [None]
  - HYPOGLYCAEMIA [None]
